FAERS Safety Report 7868122-0 (Version None)
Quarter: 2011Q4

REPORT INFORMATION
  Report Type: 
  Country: None (occurrence: None)
  Receive Date: 20111028
  Receipt Date: 20111014
  Transmission Date: 20120403
  Serious: Yes (Other)
  Sender: FDA-Public Use
  Company Number: CA-ELI_LILLY_AND_COMPANY-CA201110003561

PATIENT

DRUGS (2)
  1. ZYPREXA [Suspect]
     Dosage: 5 MG, UNK
  2. ZYPREXA [Suspect]
     Dosage: 10 MG, EACH EVENING
     Dates: start: 20070101, end: 20100101

REACTIONS (14)
  - UTERINE INJURY [None]
  - PANCREATITIS [None]
  - THIRST [None]
  - TOOTH DISCOLOURATION [None]
  - HAEMORRHAGE [None]
  - BLOOD TRIGLYCERIDES INCREASED [None]
  - FIBROMA [None]
  - CEREBROVASCULAR ACCIDENT [None]
  - NEOPLASM MALIGNANT [None]
  - TOOTH LOSS [None]
  - FATIGUE [None]
  - MYOCARDIAL INFARCTION [None]
  - HUNGER [None]
  - HYPERGLYCAEMIA [None]
